FAERS Safety Report 8374608-5 (Version None)
Quarter: 2012Q2

REPORT INFORMATION
  Report Type: 
  Country: None (occurrence: None)
  Receive Date: 20120521
  Receipt Date: 20110426
  Transmission Date: 20120825
  Serious: No
  Sender: FDA-Public Use
  Company Number: US-ASTRAZENECA-2011SE27396

PATIENT
  Sex: Female

DRUGS (2)
  1. PRILOSEC OTC [Suspect]
     Route: 048
     Dates: start: 20110423, end: 20110425
  2. THYROID THERAPY [Concomitant]
     Dosage: UNKNOWN

REACTIONS (1)
  - JOINT SWELLING [None]
